FAERS Safety Report 19865485 (Version 1)
Quarter: 2021Q3

REPORT INFORMATION
  Report Type: Spontaneous
  Country: US (occurrence: US)
  Receive Date: 20210921
  Receipt Date: 20210921
  Transmission Date: 20211014
  Serious: Yes (Hospitalization)
  Sender: FDA-Public Use
  Company Number: None

PATIENT
  Age: 61 Year
  Sex: Female

DRUGS (1)
  1. WEGOVY [Suspect]
     Active Substance: SEMAGLUTIDE
     Route: 058

REACTIONS (3)
  - Vomiting [None]
  - Incorrect dose administered [None]
  - Dehydration [None]

NARRATIVE: CASE EVENT DATE: 20210920
